FAERS Safety Report 11190618 (Version 2)
Quarter: 2015Q2

REPORT INFORMATION
  Report Type: Spontaneous
  Country: TR (occurrence: TR)
  Receive Date: 20150615
  Receipt Date: 20150624
  Transmission Date: 20150821
  Serious: Yes (Other)
  Sender: FDA-Public Use
  Company Number: TR-APOTEX-2015AP009940

PATIENT

DRUGS (1)
  1. ALENDRONATE [Suspect]
     Active Substance: ALENDRONATE SODIUM
     Indication: OSTEOPOROSIS POSTMENOPAUSAL
     Dosage: UNK UNK, UNKNOWN
     Route: 065

REACTIONS (2)
  - Femur fracture [Recovered/Resolved]
  - Humerus fracture [Recovered/Resolved]
